FAERS Safety Report 10898745 (Version 1)
Quarter: 2015Q1

REPORT INFORMATION
  Report Type: Spontaneous
  Country: US (occurrence: US)
  Receive Date: 20150309
  Receipt Date: 20150309
  Transmission Date: 20150721
  Serious: No
  Sender: FDA-Public Use
  Company Number: US-ABBVIE-14P-163-1268626-00

PATIENT
  Sex: Female

DRUGS (3)
  1. LUPRON DEPOT [Suspect]
     Active Substance: LEUPROLIDE ACETATE
     Dates: start: 2007
  2. LUPRON DEPOT [Suspect]
     Active Substance: LEUPROLIDE ACETATE
     Indication: ENDOMETRIOSIS
     Route: 030
     Dates: start: 2005
  3. LUPRON DEPOT [Suspect]
     Active Substance: LEUPROLIDE ACETATE
     Dates: start: 2009

REACTIONS (12)
  - Mood swings [Recovered/Resolved]
  - Depression [Recovered/Resolved]
  - Hot flush [Recovered/Resolved]
  - Depression [Recovered/Resolved]
  - Hormone level abnormal [Unknown]
  - Hot flush [Recovered/Resolved]
  - Hormone level abnormal [Unknown]
  - Hot flush [Recovered/Resolved]
  - Mood swings [Recovered/Resolved]
  - Endometriosis [Unknown]
  - Mood swings [Recovered/Resolved]
  - Depression [Recovered/Resolved]

NARRATIVE: CASE EVENT DATE: 2005
